FAERS Safety Report 12350471 (Version 1)
Quarter: 2016Q2

REPORT INFORMATION
  Report Type: Spontaneous
  Country: US (occurrence: US)
  Receive Date: 20160510
  Receipt Date: 20160510
  Transmission Date: 20160815
  Serious: Yes (Hospitalization, Other)
  Sender: FDA-Public Use
  Company Number: US-GLAXOSMITHKLINE-US2016064472

PATIENT
  Sex: Female

DRUGS (3)
  1. RYTHMOL [Suspect]
     Active Substance: PROPAFENONE HYDROCHLORIDE
     Indication: ATRIAL FIBRILLATION
     Dosage: 300 MG, TID
     Route: 048
     Dates: start: 2002
  2. RYTHMOL SR [Suspect]
     Active Substance: PROPAFENONE HYDROCHLORIDE
     Indication: ATRIAL FIBRILLATION
     Dosage: UNK
     Route: 048
     Dates: start: 2001, end: 2001
  3. PROPAFENONE HYDROCHLORIDE. [Suspect]
     Active Substance: PROPAFENONE HYDROCHLORIDE
     Indication: ATRIAL FIBRILLATION
     Dosage: 300 MG, TID
     Route: 048
     Dates: start: 201204, end: 201206

REACTIONS (11)
  - Fracture treatment [Recovered/Resolved]
  - Spinal fracture [Recovered/Resolved]
  - Hip fracture [Recovered/Resolved]
  - Asthma [Not Recovered/Not Resolved]
  - Cardioversion [Unknown]
  - Fall [Recovered/Resolved]
  - Product substitution issue [Unknown]
  - Upper limb fracture [Recovered/Resolved]
  - Human ehrlichiosis [Recovered/Resolved]
  - Drug ineffective [Unknown]
  - Dizziness [Recovered/Resolved]

NARRATIVE: CASE EVENT DATE: 2001
